FAERS Safety Report 5867040-7 (Version None)
Quarter: 2008Q3

REPORT INFORMATION
  Report Type: 
  Country: None (occurrence: None)
  Receive Date: 20080902
  Receipt Date: 20080827
  Transmission Date: 20090109
  Serious: Yes (Hospitalization)
  Sender: FDA-Public Use
  Company Number: B0505089A

PATIENT
  Age: 56 Year
  Sex: Female
  Weight: 80.5 kg

DRUGS (1)
  1. TOPOTECAN [Suspect]
     Dosage: 1.25MG PER DAY
     Route: 042
     Dates: start: 20070529

REACTIONS (3)
  - CARBOHYDRATE ANTIGEN 125 INCREASED [None]
  - METASTASIS [None]
  - SUBILEUS [None]
